FAERS Safety Report 4424350-8 (Version None)
Quarter: 2004Q3

REPORT INFORMATION
  Report Type: 
  Country: None (occurrence: None)
  Receive Date: 20040809
  Receipt Date: 20040727
  Transmission Date: 20050211
  Serious: Yes (Hospitalization)
  Sender: FDA-Public Use
  Company Number: 2004222914US

PATIENT
  Age: 61 Year
  Sex: Female
  Weight: 86.2 kg

DRUGS (3)
  1. CELEBREX [Suspect]
     Indication: ARTHRITIS
     Dosage: 100 MG QD ORAL
     Route: 048
     Dates: start: 20000201
  2. ALCOHOL (ETHANOL) [Suspect]
  3. SYNTHROID [Concomitant]

REACTIONS (8)
  - GENERALISED ERYTHEMA [None]
  - HYPERHIDROSIS [None]
  - HYPERSENSITIVITY [None]
  - IMPAIRED HEALING [None]
  - PRURITUS [None]
  - PULSE ABSENT [None]
  - RIB FRACTURE [None]
  - SWOLLEN TONGUE [None]
